FAERS Safety Report 8608901-5 (Version None)
Quarter: 2012Q3

REPORT INFORMATION
  Report Type: 
  Country: None (occurrence: None)
  Receive Date: 20120821
  Receipt Date: 20120806
  Transmission Date: 20120928
  Serious: Yes (Other)
  Sender: FDA-Public Use
  Company Number: ES-WATSON-2012-14339

PATIENT
  Age: 60 Year
  Sex: Female
  Weight: 55.5 kg

DRUGS (1)
  1. METRONIDAZOLE [Suspect]
     Indication: ALLERGY TEST
     Dosage: 125 MG, SINGLE
     Route: 048

REACTIONS (1)
  - ANAPHYLACTIC REACTION [None]
